FAERS Safety Report 21958993 (Version 4)
Quarter: 2024Q2

REPORT INFORMATION
  Report Type: Spontaneous
  Country: US (occurrence: US)
  Receive Date: 20230206
  Receipt Date: 20240607
  Transmission Date: 20240716
  Serious: No
  Sender: FDA-Public Use
  Company Number: US-PFIZER INC-PV202300022386

PATIENT
  Age: 65 Year
  Sex: Female

DRUGS (2)
  1. IBRANCE [Suspect]
     Active Substance: PALBOCICLIB
     Dosage: 75 MG
  2. IBRANCE [Suspect]
     Active Substance: PALBOCICLIB
     Dosage: TAKE IT 2 WEEK ON 1 WEEK OFF/TAKE 1 TABLET 1 TIME A DAY ON DAYS 1 TO 14 OF A 21 DAY CYCLE
     Route: 048

REACTIONS (3)
  - Muscular weakness [Unknown]
  - Off label use [Unknown]
  - Product use issue [Unknown]
